FAERS Safety Report 9109407 (Version 2)
Quarter: 2013Q4

REPORT INFORMATION
  Report Type: Report from Study
  Country: US (occurrence: US)
  Receive Date: 20130222
  Receipt Date: 20131029
  Transmission Date: 20140711
  Serious: No
  Sender: FDA-Public Use
  Company Number: PHEH2013US004410

PATIENT
  Age: 68 Year
  Sex: Female

DRUGS (5)
  1. TASIGNA [Suspect]
     Indication: CHRONIC MYELOID LEUKAEMIA
     Dosage: 400 MG, BID
     Route: 048
     Dates: start: 20120221
  2. ATIVAN [Concomitant]
  3. CALCIUM [Concomitant]
  4. ZANTAC [Concomitant]
  5. ZOLOFT [Concomitant]

REACTIONS (2)
  - Myalgia [Unknown]
  - Rash [Recovering/Resolving]
